FAERS Safety Report 12307016 (Version 1)
Quarter: 2016Q2

REPORT INFORMATION
  Report Type: Spontaneous
  Country: US (occurrence: US)
  Receive Date: 20160426
  Receipt Date: 20160426
  Transmission Date: 20160815
  Serious: No
  Sender: FDA-Public Use
  Company Number: US-BRISTOL-MYERS SQUIBB COMPANY-BMS-2016-030528

PATIENT
  Sex: Male
  Weight: 79.37 kg

DRUGS (1)
  1. DAKLINZA [Suspect]
     Active Substance: DACLATASVIR
     Indication: HEPATITIS
     Dosage: UNK
     Route: 065
     Dates: start: 201512, end: 20160310

REACTIONS (1)
  - Hepatic pain [Unknown]
